FAERS Safety Report 7099067-4 (Version None)
Quarter: 2010Q4

REPORT INFORMATION
  Report Type: 
  Country: None (occurrence: None)
  Receive Date: 20101112
  Receipt Date: 20101108
  Transmission Date: 20110411
  Serious: Yes (Hospitalization)
  Sender: FDA-Public Use
  Company Number: A0774930A

PATIENT
  Age: 60 Year
  Sex: Male
  Weight: 86.4 kg

DRUGS (3)
  1. AVANDIA [Suspect]
     Dosage: 8MG PER DAY
     Route: 048
     Dates: start: 20030303, end: 20070501
  2. ALTACE [Concomitant]
  3. AMARYL [Concomitant]
     Dosage: 8MG PER DAY
     Route: 048
     Dates: start: 20030301

REACTIONS (3)
  - CARDIAC DISORDER [None]
  - CEREBROVASCULAR ACCIDENT [None]
  - MYOCARDIAL ISCHAEMIA [None]
